FAERS Safety Report 20394495 (Version 4)
Quarter: 2024Q2

REPORT INFORMATION
  Report Type: Report from Study
  Country: EG (occurrence: EG)
  Receive Date: 20220129
  Receipt Date: 20240614
  Transmission Date: 20240716
  Serious: Yes (Other)
  Sender: FDA-Public Use
  Company Number: EG-NOVARTISPH-NVSC2022EG016142

PATIENT
  Sex: Female

DRUGS (9)
  1. AFINITOR [Suspect]
     Active Substance: EVEROLIMUS
     Indication: Breast cancer metastatic
     Dosage: 5 MG
     Route: 048
     Dates: start: 2013
  2. AFINITOR [Suspect]
     Active Substance: EVEROLIMUS
     Dosage: 10 MG
     Route: 048
  3. KISQALI [Suspect]
     Active Substance: RIBOCICLIB
     Indication: Breast cancer metastatic
     Dosage: 200 MG, Q8H (FOR 21 DAYS AND A FREE WEEK)
     Route: 048
     Dates: start: 20190701
  4. KISQALI [Suspect]
     Active Substance: RIBOCICLIB
     Dosage: 3 DOSAGE FORM, QD (EVERY 8 HOURS)
     Route: 048
  5. KISQALI [Suspect]
     Active Substance: RIBOCICLIB
     Dosage: 1 DOSAGE FORM, TID FOR 21 DAYS AND 1 WEEK OFF
     Route: 048
     Dates: start: 201912, end: 202404
  6. FASLODEX [Suspect]
     Active Substance: FULVESTRANT
     Indication: Hormone therapy
     Dosage: UNK
     Route: 065
  7. BISOPROLOL FUMARATE [Concomitant]
     Active Substance: BISOPROLOL FUMARATE
     Indication: Hypertension
     Dosage: 1 DOSAGE FORM, QD (SINCE 30 YEARS AGO)
     Route: 048
  8. DILTIAZEM HYDROCHLORIDE [Concomitant]
     Active Substance: DILTIAZEM HYDROCHLORIDE
     Indication: Hypertension
     Dosage: 60 MG, TID (SINCE 30 YEARS AGO)
     Route: 065
  9. ASPIRIN [Concomitant]
     Active Substance: ASPIRIN
     Indication: Hypertension
     Dosage: UNK, QD (SINCE 30 YEARS AGO)
     Route: 065

REACTIONS (11)
  - Gastrointestinal haemorrhage [Recovered/Resolved]
  - Anaemia [Recovering/Resolving]
  - Renal impairment [Not Recovered/Not Resolved]
  - Concomitant disease aggravated [Not Recovered/Not Resolved]
  - Metastases to liver [Unknown]
  - Osteoporosis [Not Recovered/Not Resolved]
  - Alopecia [Not Recovered/Not Resolved]
  - Coronavirus infection [Recovering/Resolving]
  - Dyspepsia [Not Recovered/Not Resolved]
  - Pyrexia [Recovering/Resolving]
  - Off label use [Recovered/Resolved]

NARRATIVE: CASE EVENT DATE: 20190101
